FAERS Safety Report 5052973-4 (Version None)
Quarter: 2006Q3

REPORT INFORMATION
  Report Type: 
  Country: None (occurrence: None)
  Receive Date: 20060712
  Receipt Date: 20060629
  Transmission Date: 20061208
  Serious: Yes (Other)
  Sender: FDA-Public Use
  Company Number: 2006060392

PATIENT
  Age: 26 Year
  Sex: Female
  Weight: 113.3993 kg

DRUGS (3)
  1. LOMOTIL [Suspect]
     Indication: DIARRHOEA
     Dosage: 1 CAPSULE (4 IN 1 D),
     Dates: start: 20060101
  2. PENICILLIN [Concomitant]
  3. MECLIZINE [Concomitant]

REACTIONS (1)
  - DRUG SCREEN FALSE POSITIVE [None]
